FAERS Safety Report 4325004-9 (Version None)
Quarter: 2004Q1

REPORT INFORMATION
  Report Type: 
  Country: None (occurrence: None)
  Receive Date: 20040323
  Receipt Date: 20040129
  Transmission Date: 20041129
  Serious: No
  Sender: FDA-Public Use
  Company Number: USA040156958

PATIENT
  Age: 55 Year
  Sex: Male

DRUGS (1)
  1. CIALIS [Suspect]
     Indication: ERECTILE DYSFUNCTION
     Dosage: 10 MG/DAY
     Dates: start: 20040108

REACTIONS (6)
  - DRUG INEFFECTIVE [None]
  - DYSPHONIA [None]
  - FLUSHING [None]
  - HEADACHE [None]
  - MUSCULOSKELETAL STIFFNESS [None]
  - SINUS CONGESTION [None]
